FAERS Safety Report 18287042 (Version 1)
Quarter: 2020Q3

REPORT INFORMATION
  Report Type: Report from Study
  Country: None (occurrence: US)
  Receive Date: 20200921
  Receipt Date: 20200921
  Transmission Date: 20201103
  Serious: Yes (Hospitalization)
  Sender: FDA-Public Use
  Company Number: US-ABBVIE-20K-163-3568511-00

PATIENT
  Age: 74 Year
  Sex: Female

DRUGS (2)
  1. RINVOQ [Suspect]
     Active Substance: UPADACITINIB
     Indication: RHEUMATOID ARTHRITIS
     Route: 048
     Dates: end: 2020
  2. RINVOQ [Suspect]
     Active Substance: UPADACITINIB
     Route: 048
     Dates: start: 2020

REACTIONS (10)
  - Abdominal pain [Recovered/Resolved]
  - Cold sweat [Unknown]
  - Blood magnesium decreased [Unknown]
  - Pallor [Recovered/Resolved]
  - Arthralgia [Recovering/Resolving]
  - Gastrointestinal infection [Unknown]
  - Diarrhoea haemorrhagic [Recovered/Resolved]
  - Fatigue [Recovering/Resolving]
  - Euphoric mood [Unknown]
  - Nausea [Recovered/Resolved]

NARRATIVE: CASE EVENT DATE: 2020
